FAERS Safety Report 15935557 (Version 1)
Quarter: 2019Q1

REPORT INFORMATION
  Report Type: Spontaneous
  Country: RO (occurrence: RO)
  Receive Date: 20190208
  Receipt Date: 20190208
  Transmission Date: 20190417
  Serious: Yes (Hospitalization, Other)
  Sender: FDA-Public Use
  Company Number: RO-SUN PHARMACEUTICAL INDUSTRIES LTD-2019RR-198527

PATIENT
  Age: 31 Year
  Sex: Female

DRUGS (1)
  1. ASPENTER [Suspect]
     Active Substance: ASPIRIN
     Indication: PRODUCT USED FOR UNKNOWN INDICATION
     Dosage: FOUR BLISTERS
     Route: 048

REACTIONS (5)
  - Suicide attempt [Unknown]
  - Vomiting [Unknown]
  - Poisoning [Unknown]
  - Intentional overdose [Unknown]
  - Malaise [Unknown]

NARRATIVE: CASE EVENT DATE: 20190120
